FAERS Safety Report 6053847-2 (Version None)
Quarter: 2009Q1

REPORT INFORMATION
  Report Type: 
  Country: None (occurrence: None)
  Receive Date: 20090127
  Receipt Date: 20090112
  Transmission Date: 20090719
  Serious: Yes (Other)
  Sender: FDA-Public Use
  Company Number: GB-GENENTECH-275947

PATIENT
  Age: 60 Year
  Sex: Male

DRUGS (3)
  1. MABTHERA [Suspect]
     Indication: POLYMYOSITIS
     Dosage: 1 G, UNK
     Route: 042
  2. METHYLPREDNISOLONE [Suspect]
     Indication: POLYMYOSITIS
     Dosage: 100 MG, UNK
     Route: 042
  3. PREDNISOLONE [Suspect]
     Indication: POLYMYOSITIS
     Dosage: 15 UNK, UNK
     Route: 048

REACTIONS (1)
  - MYOSITIS [None]
